FAERS Safety Report 9930632 (Version 3)
Quarter: 2014Q1

REPORT INFORMATION
  Report Type: Spontaneous
  Country: JP (occurrence: JP)
  Receive Date: 20140227
  Receipt Date: 20140318
  Transmission Date: 20141002
  Serious: Yes (Hospitalization, Other)
  Sender: FDA-Public Use
  Company Number: JP-B.I. PHARMACEUTICALS,INC./RIDGEFIELD-2014-BI-08164GD

PATIENT
  Sex: 0

DRUGS (4)
  1. MOBIC [Suspect]
     Indication: RHEUMATOID ARTHRITIS
     Dosage: 10 MG
     Route: 065
     Dates: end: 200307
  2. KENACORT [Suspect]
     Indication: RHEUMATOID ARTHRITIS
     Route: 030
  3. PREDNISOLONE [Suspect]
     Indication: RHEUMATOID ARTHRITIS
     Dosage: 3 MG
     Route: 065
  4. NORVASC [Suspect]
     Indication: HYPERTENSION
     Dosage: 2.5 MG
     Route: 065
     Dates: start: 200307

REACTIONS (4)
  - Renal failure [Unknown]
  - Thyroid neoplasm [Unknown]
  - Hypertension [Unknown]
  - Amyloidosis [Unknown]
